FAERS Safety Report 11028629 (Version 2)
Quarter: 2015Q2

REPORT INFORMATION
  Report Type: Spontaneous
  Country: US (occurrence: US)
  Receive Date: 20150414
  Receipt Date: 20150525
  Transmission Date: 20150821
  Serious: No
  Sender: FDA-Public Use
  Company Number: US-JNJFOC-20130807314

PATIENT
  Age: 18 Year
  Sex: Female
  Weight: 64.41 kg

DRUGS (1)
  1. MONONESSA [Suspect]
     Active Substance: ETHINYL ESTRADIOL\NORGESTIMATE
     Indication: AMENORRHOEA
     Route: 048
     Dates: start: 201304, end: 20130805

REACTIONS (2)
  - Abdominal distension [Recovering/Resolving]
  - Off label use [Unknown]

NARRATIVE: CASE EVENT DATE: 201304
